FAERS Safety Report 12632141 (Version 2)
Quarter: 2016Q3

REPORT INFORMATION
  Report Type: Spontaneous
  Country: US (occurrence: US)
  Receive Date: 20160808
  Receipt Date: 20160808
  Transmission Date: 20161109
  Serious: No
  Sender: FDA-Public Use
  Company Number: US-BEH-2016061969

PATIENT
  Sex: Female
  Weight: 51 kg

DRUGS (19)
  1. ASACOL [Concomitant]
     Active Substance: MESALAMINE
  2. ACETAMINOPHEN. [Concomitant]
     Active Substance: ACETAMINOPHEN
  3. PROMETHAZINE [Concomitant]
     Active Substance: PROMETHAZINE\PROMETHAZINE HYDROCHLORIDE
  4. PERCOCET [Concomitant]
     Active Substance: ACETAMINOPHEN\OXYCODONE HYDROCHLORIDE
  5. PROTONIX [Concomitant]
     Active Substance: PANTOPRAZOLE SODIUM
  6. HIZENTRA [Suspect]
     Active Substance: HUMAN IMMUNOGLOBULIN G
     Route: 058
     Dates: start: 20160205
  7. DIPHENHYDRAMINE. [Concomitant]
     Active Substance: DIPHENHYDRAMINE
  8. EPIPEN [Concomitant]
     Active Substance: EPINEPHRINE
  9. SOMA [Concomitant]
     Active Substance: CARISOPRODOL
  10. ZOLOFT [Concomitant]
     Active Substance: SERTRALINE HYDROCHLORIDE
  11. PANTOPRAZOLE [Concomitant]
     Active Substance: PANTOPRAZOLE SODIUM
  12. KLONOPIN [Concomitant]
     Active Substance: CLONAZEPAM
  13. PATANASE [Concomitant]
     Active Substance: OLOPATADINE HYDROCHLORIDE
  14. MODAFINIL. [Concomitant]
     Active Substance: MODAFINIL
  15. QVAR [Concomitant]
     Active Substance: BECLOMETHASONE DIPROPIONATE
  16. VERAMYST [Concomitant]
     Active Substance: FLUTICASONE FUROATE
  17. SUMATRIPTAN. [Concomitant]
     Active Substance: SUMATRIPTAN
  18. LYRICA [Concomitant]
     Active Substance: PREGABALIN
  19. BENTYL [Concomitant]
     Active Substance: DICYCLOMINE HYDROCHLORIDE

REACTIONS (3)
  - Pain [Unknown]
  - Nausea [Unknown]
  - Headache [Unknown]
